FAERS Safety Report 6550273-4 (Version None)
Quarter: 2010Q1

REPORT INFORMATION
  Report Type: 
  Country: None (occurrence: None)
  Receive Date: 20100119
  Receipt Date: 20100105
  Transmission Date: 20100710
  Serious: Yes (Hospitalization)
  Sender: FDA-Public Use
  Company Number: FR-001332

PATIENT
  Age: 3 Year
  Sex: Male
  Weight: 14 kg

DRUGS (1)
  1. MINIRIN [Suspect]
     Indication: DIABETES INSIPIDUS
     Dosage: 0.75 MG, ORAL
     Route: 048
     Dates: start: 20090901

REACTIONS (4)
  - INTRACARDIAC THROMBUS [None]
  - PULMONARY EMBOLISM [None]
  - THROMBOSIS IN DEVICE [None]
  - VENOUS THROMBOSIS LIMB [None]
